FAERS Safety Report 9220244 (Version 2)
Quarter: 2013Q3

REPORT INFORMATION
  Report Type: Report from Study
  Country: ES (occurrence: ES)
  Receive Date: 20130409
  Receipt Date: 20130725
  Transmission Date: 20140515
  Serious: Yes (Hospitalization, Disabling)
  Sender: FDA-Public Use
  Company Number: ES-TEVA-397088USA

PATIENT
  Age: 76 Year
  Sex: Male
  Weight: 77 kg

DRUGS (16)
  1. BENDAMUSTINE [Suspect]
     Indication: NON-HODGKIN^S LYMPHOMA
     Route: 042
     Dates: start: 20120126
  2. OBINUTUZUMAB [Suspect]
     Indication: NON-HODGKIN^S LYMPHOMA
     Route: 042
     Dates: start: 20120125
  3. RANITIDINE [Concomitant]
     Indication: GASTRITIS
     Dates: start: 20120118, end: 20120621
  4. SALBUTAMOL [Concomitant]
     Indication: ASTHMA
     Route: 055
     Dates: end: 20120802
  5. ASPIRIN [Concomitant]
     Indication: PRODUCT USED FOR UNKNOWN INDICATION
     Dates: end: 20120210
  6. BUDESONIDE [Concomitant]
     Indication: ASTHMA
     Route: 055
     Dates: end: 20120802
  7. TEOFILINA [Concomitant]
     Dates: end: 20120802
  8. IPRATROPIO BROMURO [Concomitant]
     Indication: ASTHMA
     Dates: end: 20120802
  9. PARACETAMOL [Concomitant]
     Indication: NASOPHARYNGITIS
     Dates: start: 20120121, end: 20120201
  10. PARACETAMOL [Concomitant]
     Indication: PYREXIA
  11. FUROSEMIDE [Concomitant]
     Indication: HYPERTENSIVE CRISIS
     Dates: start: 20120208, end: 20120208
  12. RED BLOOD CELLS, CONCENTRATED [Concomitant]
     Indication: ANAEMIA
     Dates: start: 20120210, end: 20120211
  13. AMOXICILLIN W/CLAVULANIC ACID [Concomitant]
     Indication: URINARY TRACT INFECTION
     Dates: start: 20120208, end: 20120214
  14. METFORMIN [Concomitant]
     Indication: DIABETES MELLITUS
     Dates: end: 20120708
  15. HUMALOG [Concomitant]
     Indication: DIABETES MELLITUS
     Dates: end: 20120802
  16. ALLOPURINOL [Concomitant]
     Indication: PRODUCT USED FOR UNKNOWN INDICATION
     Dates: start: 20120125, end: 20120802

REACTIONS (2)
  - Gastrointestinal haemorrhage [Recovered/Resolved]
  - Hyperglycaemia [Recovered/Resolved]
